FAERS Safety Report 7715900-4 (Version None)
Quarter: 2011Q3

REPORT INFORMATION
  Report Type: 
  Country: None (occurrence: None)
  Receive Date: 20110823
  Receipt Date: 20110810
  Transmission Date: 20111222
  Serious: Yes (Death)
  Sender: FDA-Public Use
  Company Number: FK201101627

PATIENT
  Age: 15 Year
  Sex: Female

DRUGS (1)
  1. METHYLPREDNISOLONE SODIUM SUCCINATE [Suspect]
     Indication: STATUS ASTHMATICUS

REACTIONS (4)
  - CARDIAC ARREST [None]
  - OFF LABEL USE [None]
  - BRONCHOSPASM [None]
  - BRADYCARDIA [None]
